FAERS Safety Report 21862386 (Version 8)
Quarter: 2024Q1

REPORT INFORMATION
  Report Type: Report from Study
  Country: US (occurrence: US)
  Receive Date: 20230114
  Receipt Date: 20240322
  Transmission Date: 20240410
  Serious: Yes (Hospitalization, Other)
  Sender: FDA-Public Use
  Company Number: US-ABBVIE-4270230

PATIENT
  Sex: Female

DRUGS (8)
  1. VENCLEXTA [Suspect]
     Active Substance: VENETOCLAX
     Indication: Chronic lymphocytic leukaemia
     Dosage: FORM STRENGTH: 100 MG
     Route: 048
     Dates: start: 20230110
  2. VENCLEXTA [Suspect]
     Active Substance: VENETOCLAX
     Indication: Chronic lymphocytic leukaemia
     Route: 048
     Dates: start: 20230110
  3. VENCLEXTA [Suspect]
     Active Substance: VENETOCLAX
     Indication: Chronic lymphocytic leukaemia
     Route: 048
     Dates: start: 202301
  4. VENCLEXTA [Suspect]
     Active Substance: VENETOCLAX
     Indication: Chronic lymphocytic leukaemia
     Route: 048
     Dates: start: 202301
  5. VENCLEXTA [Suspect]
     Active Substance: VENETOCLAX
     Indication: Chronic lymphocytic leukaemia
     Route: 048
     Dates: start: 20230110
  6. GAZYVA [Suspect]
     Active Substance: OBINUTUZUMAB
     Indication: Product used for unknown indication
     Route: 065
  7. COVID-19 VACCINE NOS [Suspect]
     Active Substance: COVID-19 VACCINE NOS
     Indication: COVID-19 immunisation
     Route: 030
  8. COVID-19 VACCINE NOS [Suspect]
     Active Substance: COVID-19 VACCINE NOS
     Indication: COVID-19 immunisation
     Dosage: BOOSTER DOSE
     Route: 030

REACTIONS (36)
  - Platelet count abnormal [Unknown]
  - Pain [Unknown]
  - Discomfort [Recovering/Resolving]
  - Constipation [Not Recovered/Not Resolved]
  - Pollakiuria [Not Recovered/Not Resolved]
  - Abdominal distension [Unknown]
  - Hypotension [Unknown]
  - Haemoglobin decreased [Unknown]
  - Contusion [Unknown]
  - Platelet count decreased [Not Recovered/Not Resolved]
  - White blood cell count decreased [Unknown]
  - Joint swelling [Unknown]
  - Sciatica [Unknown]
  - Confusional state [Unknown]
  - Neutrophil count increased [Unknown]
  - Flatulence [Unknown]
  - Dementia Alzheimer^s type [Unknown]
  - Abdominal pain upper [Unknown]
  - Arthropathy [Unknown]
  - Unevaluable event [Unknown]
  - Asthenia [Unknown]
  - Arthralgia [Unknown]
  - Blood pressure measurement [Unknown]
  - Myalgia [Unknown]
  - Neobladder surgery [Unknown]
  - Musculoskeletal pain [Unknown]
  - Diarrhoea [Recovering/Resolving]
  - Fatigue [Unknown]
  - Nausea [Unknown]
  - Platelet transfusion [Unknown]
  - Chronic lymphocytic leukaemia [Unknown]
  - Complication associated with device [Unknown]
  - Bursitis [Unknown]
  - Haemoglobin abnormal [Unknown]
  - Transfusion [Unknown]
  - Memory impairment [Unknown]

NARRATIVE: CASE EVENT DATE: 20230101
